APPROVED DRUG PRODUCT: FEBUXOSTAT
Active Ingredient: FEBUXOSTAT
Strength: 40MG
Dosage Form/Route: TABLET;ORAL
Application: A211837 | Product #001
Applicant: TORRENT PHARMACEUTICALS LTD
Approved: Dec 19, 2023 | RLD: No | RS: No | Type: DISCN